FAERS Safety Report 8563931-7 (Version None)
Quarter: 2012Q3

REPORT INFORMATION
  Report Type: 
  Country: None (occurrence: None)
  Receive Date: 20120723
  Receipt Date: 20120103
  Transmission Date: 20120928
  Serious: Yes (Other)
  Sender: FDA-Public Use
  Company Number: 2012031465

PATIENT
  Age: 33 Year
  Sex: Female

DRUGS (1)
  1. RHOPHYLAC [Suspect]
     Dosage: INTRAMUSCULAR
     Route: 030
     Dates: start: 20111230

REACTIONS (7)
  - VIRAL INFECTION [None]
  - WRONG DRUG ADMINISTERED [None]
  - LYMPHADENOPATHY [None]
  - PYREXIA [None]
  - VOMITING [None]
  - DIARRHOEA [None]
  - TONSILLITIS [None]
